FAERS Safety Report 5880952-3 (Version None)
Quarter: 2008Q3

REPORT INFORMATION
  Report Type: 
  Country: None (occurrence: None)
  Receive Date: 20080910
  Receipt Date: 20080825
  Transmission Date: 20090109
  Serious: Yes (Other)
  Sender: FDA-Public Use
  Company Number: 2008EU001783

PATIENT
  Age: 32 Year
  Sex: Female

DRUGS (2)
  1. PROTOPIC [Suspect]
     Indication: DERMATITIS ATOPIC
     Dosage: 0.1%, PRN, TOPICAL
     Route: 061
     Dates: start: 20070301, end: 20080101
  2. FEXOFENADINE HCL [Suspect]
     Dosage: 180 MG, UNKNOWN/D, ORAL
     Route: 048
     Dates: end: 20070601

REACTIONS (3)
  - ABORTION INDUCED [None]
  - DRUG EXPOSURE DURING PREGNANCY [None]
  - PREGNANCY [None]
